FAERS Safety Report 6756412-4 (Version None)
Quarter: 2010Q2

REPORT INFORMATION
  Report Type: 
  Country: None (occurrence: None)
  Receive Date: 20100604
  Receipt Date: 20100528
  Transmission Date: 20101027
  Serious: Yes (Hospitalization)
  Sender: FDA-Public Use
  Company Number: A0783343A

PATIENT
  Age: 48 Year
  Sex: Female

DRUGS (8)
  1. AVANDIA [Suspect]
     Dosage: 8MG TWICE PER DAY
     Route: 048
     Dates: start: 20001009, end: 20070501
  2. GLUCOPHAGE [Concomitant]
  3. LOTREL [Concomitant]
  4. LEVOXYL [Concomitant]
  5. PREVACID [Concomitant]
  6. THYROID TAB [Concomitant]
  7. CHOLESTYRAMINE [Concomitant]
  8. BUSPIRONE HCL [Concomitant]

REACTIONS (5)
  - CARDIAC FAILURE CONGESTIVE [None]
  - CAROTID ARTERY DISEASE [None]
  - CORONARY ARTERY DISEASE [None]
  - MYOCARDIAL INFARCTION [None]
  - THROMBOSIS [None]
